FAERS Safety Report 4779890-9 (Version None)
Quarter: 2005Q3

REPORT INFORMATION
  Report Type: 
  Country: None (occurrence: None)
  Receive Date: 20050914
  Receipt Date: 20050426
  Transmission Date: 20060218
  Serious: Yes (Hospitalization)
  Sender: FDA-Public Use
  Company Number: 163-20785-05040504

PATIENT
  Age: 21 Month
  Sex: Male
  Weight: 13.2 kg

DRUGS (2)
  1. THALOMID [Suspect]
     Indication: EPENDYMOMA
     Dosage: 300 MG, QHS, ORAL
     Route: 048
     Dates: start: 20041006
  2. TEMOZOLOMIDE (TEMOZOLOMIDE) (CAPSULES) [Suspect]
     Indication: EPENDYMOMA
     Dosage: 80 MG, DAILY X 5 DAYS, ORAL
     Route: 048
     Dates: start: 20041006, end: 20040227

REACTIONS (1)
  - STREPTOCOCCAL BACTERAEMIA [None]
